FAERS Safety Report 5822252-3 (Version None)
Quarter: 2008Q3

REPORT INFORMATION
  Report Type: 
  Country: None (occurrence: None)
  Receive Date: 20080723
  Receipt Date: 20080723
  Transmission Date: 20090109
  Serious: No
  Sender: FDA-Public Use
  Company Number: None

PATIENT
  Sex: Female
  Weight: 105.2345 kg

DRUGS (2)
  1. CELEXA [Suspect]
     Indication: ANXIETY
     Dosage: 10 MG DAILY PO
     Route: 048
     Dates: start: 20010210, end: 20050823
  2. CELEXA [Suspect]
     Indication: STRESS
     Dosage: 10 MG DAILY PO
     Route: 048
     Dates: start: 20010210, end: 20050823

REACTIONS (8)
  - ABDOMINAL DISTENSION [None]
  - CHOLELITHIASIS [None]
  - HYPERHIDROSIS [None]
  - IMPAIRED GASTRIC EMPTYING [None]
  - MUSCULOSKELETAL CHEST PAIN [None]
  - NAUSEA [None]
  - NONSPECIFIC REACTION [None]
  - VOMITING [None]
